FAERS Safety Report 9491415 (Version 2)
Quarter: 2013Q1

REPORT INFORMATION
  Report Type: Not Available
  Country: US (occurrence: US)
  Receive Date: 20120619
  Receipt Date: 20120619
  Transmission Date: 20140127
  Serious: Yes (Hospitalization)
  Sender: FDA-Public Use
  Company Number: US-LUNDBECK-DKLU1069026

PATIENT
  Age: 27 None
  Sex: Male
  Weight: 53 kg

DRUGS (28)
  1. CLOBAZAM [Suspect]
     Indication: LENNOX-GASTAUT SYNDROME
     Route: 048
     Dates: start: 20090903
  2. CLOBAZAM [Suspect]
     Route: 048
     Dates: start: 20101109
  3. CHILDRENS CHEWABLE VITAMIN [Concomitant]
     Indication: NUTRITIONAL SUPPLEMENTATION
     Route: 048
     Dates: start: 20080910
  4. MIRALAX POWDER [Concomitant]
     Indication: FUNCTIONAL GASTROINTESTINAL DISORDER
     Route: 048
     Dates: start: 20080910
  5. DEPAKOTE ER [Concomitant]
     Indication: CONVULSION
     Route: 048
     Dates: start: 200406
  6. TOPAMAX [Concomitant]
     Indication: CONVULSION
     Route: 048
     Dates: start: 20050614
  7. MORPHINE SULFATE [Concomitant]
     Indication: PAIN
     Route: 050
     Dates: start: 20110113, end: 20110113
  8. MORPHINE SULFATE [Concomitant]
     Indication: SURGERY
     Route: 050
     Dates: start: 20110114, end: 20110114
  9. MORPHINE SULFATE [Concomitant]
     Indication: PAIN
     Route: 050
     Dates: start: 20110114, end: 20110119
  10. OXYGEN [Concomitant]
     Indication: SURGERY
     Dosage: 1.5 - 10L
     Dates: start: 20110114, end: 20110114
  11. PROPOFOL [Concomitant]
     Indication: SURGERY
     Route: 050
     Dates: start: 20110114, end: 20110114
  12. FENTANYL [Concomitant]
     Indication: SURGERY
     Route: 050
     Dates: start: 20110114, end: 20110114
  13. LIDOCAINE [Concomitant]
     Indication: SURGERY
     Route: 050
     Dates: start: 20110114, end: 20110114
  14. ZOFRAN [Concomitant]
     Indication: SURGERY
     Route: 050
     Dates: start: 20110114, end: 20110114
  15. DECADRON [Concomitant]
     Indication: SURGERY
     Route: 050
     Dates: start: 20110114, end: 20110114
  16. LACTATED RINGERS [Concomitant]
     Indication: SURGERY
     Route: 050
     Dates: start: 20110114, end: 20110114
  17. ANCEF [Concomitant]
     Indication: SURGERY
     Route: 050
     Dates: start: 20110114, end: 20110114
  18. NORCO 5/325 [Concomitant]
     Indication: PAIN
     Dosage: 2 TABS
     Route: 048
     Dates: start: 20110115, end: 20110116
  19. NORCO 5/325 [Concomitant]
     Dosage: 1 TAB
     Route: 048
     Dates: start: 20110116, end: 20110121
  20. TYLENOL [Concomitant]
     Indication: PYREXIA
     Route: 048
     Dates: start: 20110116, end: 20110116
  21. 5% DEXTROSE/NORMAL SALINE [Concomitant]
     Indication: POSTOPERATIVE CARE
     Route: 050
     Dates: start: 20110113, end: 20110115
  22. SODIUM CHLORIDE [Concomitant]
     Indication: POSTOPERATIVE CARE
     Route: 050
     Dates: start: 20110118, end: 20110118
  23. VANCOMYCIN [Concomitant]
     Indication: PYREXIA
     Route: 050
     Dates: start: 20110117, end: 20110117
  24. VANCOMYCIN [Concomitant]
     Route: 050
     Dates: start: 20110118, end: 20110118
  25. VANCOMYCIN [Concomitant]
     Route: 050
     Dates: start: 20110119, end: 20110121
  26. AZITHROMYCIN [Concomitant]
     Indication: PYREXIA
     Route: 048
     Dates: start: 20110119, end: 20110119
  27. AZITHROMYCIN [Concomitant]
     Route: 048
     Dates: start: 20110120, end: 20110127
  28. AUGMENTIN [Concomitant]
     Indication: PYREXIA
     Route: 048
     Dates: start: 20110119, end: 20110126

REACTIONS (2)
  - Tibia fracture [Recovered/Resolved]
  - Fibula fracture [Recovered/Resolved]
